FAERS Safety Report 14208597 (Version 2)
Quarter: 2018Q1

REPORT INFORMATION
  Report Type: Spontaneous
  Country: TH (occurrence: TH)
  Receive Date: 20171121
  Receipt Date: 20180110
  Transmission Date: 20180508
  Serious: Yes (Death, Hospitalization, Other)
  Sender: FDA-Public Use
  Company Number: TH-ASTELLAS-2017US047914

PATIENT
  Age: 67 Year
  Sex: Male

DRUGS (2)
  1. XTANDI [Suspect]
     Active Substance: ENZALUTAMIDE
     Route: 050
     Dates: start: 20170917
  2. XTANDI [Suspect]
     Active Substance: ENZALUTAMIDE
     Indication: HORMONE-REFRACTORY PROSTATE CANCER
     Route: 048
     Dates: start: 20170902, end: 20170916

REACTIONS (7)
  - Gait inability [Not Recovered/Not Resolved]
  - Vomiting [Not Recovered/Not Resolved]
  - Fatigue [Recovered/Resolved with Sequelae]
  - Intentional product misuse [Unknown]
  - Asthenia [Not Recovered/Not Resolved]
  - Malignant neoplasm progression [Fatal]
  - Feeding disorder [Not Recovered/Not Resolved]

NARRATIVE: CASE EVENT DATE: 20170916
